FAERS Safety Report 7508856-0 (Version None)
Quarter: 2011Q2

REPORT INFORMATION
  Report Type: 
  Country: None (occurrence: None)
  Receive Date: 20110527
  Receipt Date: 20110516
  Transmission Date: 20111010
  Serious: Yes (Hospitalization)
  Sender: FDA-Public Use
  Company Number: PHHY2011RU36999

PATIENT
  Sex: Male

DRUGS (1)
  1. EXJADE [Suspect]
     Indication: SERUM FERRITIN INCREASED
     Dosage: 1000 MG, DAILY
     Dates: start: 20110415

REACTIONS (3)
  - RASH GENERALISED [None]
  - PURPURA [None]
  - PLATELET COUNT DECREASED [None]
